FAERS Safety Report 6254631-7 (Version None)
Quarter: 2009Q3

REPORT INFORMATION
  Report Type: 
  Country: None (occurrence: None)
  Receive Date: 20090702
  Receipt Date: 20090622
  Transmission Date: 20100115
  Serious: Yes (Other)
  Sender: FDA-Public Use
  Company Number: B0480020A

PATIENT
  Age: 54 Year
  Sex: Female

DRUGS (2)
  1. PAROXETINE HCL [Suspect]
     Indication: DEPRESSION
     Route: 065
     Dates: start: 20040706
  2. NEULACTIL [Suspect]
     Indication: ANXIETY
     Route: 048
     Dates: start: 20051222, end: 20060607

REACTIONS (1)
  - TARDIVE DYSKINESIA [None]
